FAERS Safety Report 20764186 (Version 1)
Quarter: 2022Q2

REPORT INFORMATION
  Report Type: Spontaneous
  Country: US (occurrence: None)
  Receive Date: 20220428
  Receipt Date: 20220428
  Transmission Date: 20220721
  Serious: Yes (Disabling)
  Sender: FDA-Public Use
  Company Number: None

PATIENT
  Age: 74 Year
  Sex: Female
  Weight: 83.25 kg

DRUGS (2)
  1. LIDOCAINE [Suspect]
     Active Substance: LIDOCAINE
     Indication: Dental care
     Dates: start: 20211216, end: 20211216
  2. SEPTOCAINE [Suspect]
     Active Substance: ARTICAINE HYDROCHLORIDE\EPINEPHRINE BITARTRATE
     Indication: Dental care
     Dates: start: 20211216, end: 20211216

REACTIONS (8)
  - Dizziness [None]
  - Tremor [None]
  - Headache [None]
  - Nausea [None]
  - Dysstasia [None]
  - Hypokinesia [None]
  - Balance disorder [None]
  - Vomiting [None]

NARRATIVE: CASE EVENT DATE: 20211216
